FAERS Safety Report 25645673 (Version 1)
Quarter: 2025Q3

REPORT INFORMATION
  Report Type: Spontaneous
  Country: US (occurrence: US)
  Receive Date: 20250805
  Receipt Date: 20250805
  Transmission Date: 20251020
  Serious: No
  Sender: DR REDDYS
  Company Number: US-DRL-USA-USA/2025/07/011434

PATIENT
  Age: 35 Year
  Sex: Male

DRUGS (1)
  1. FINASTERIDE [Suspect]
     Active Substance: FINASTERIDE
     Indication: Product used for unknown indication
     Dosage: WHEN COVID STARTED IN 2020, PATIENT WAS UNABLE TO REFILL HIS ORAL FINASTERIDE AND TEMPORARILY DISCON
     Route: 048

REACTIONS (2)
  - Libido decreased [Unknown]
  - Vitiligo [Unknown]
